FAERS Safety Report 21970653 (Version 1)
Quarter: 2023Q1

REPORT INFORMATION
  Report Type: Spontaneous
  Country: US (occurrence: US)
  Receive Date: 20230209
  Receipt Date: 20230209
  Transmission Date: 20230418
  Serious: Yes (Death)
  Sender: FDA-Public Use
  Company Number: US-ADC THERAPEUTICS-ADC-2023-000053

PATIENT

DRUGS (1)
  1. ZYNLONTA [Suspect]
     Active Substance: LONCASTUXIMAB TESIRINE-LPYL
     Indication: Product used for unknown indication
     Dosage: UNK
     Route: 065
     Dates: start: 20220428, end: 20220519

REACTIONS (2)
  - Death [Fatal]
  - Thermal burn [Unknown]

NARRATIVE: CASE EVENT DATE: 20220601
